FAERS Safety Report 9924931 (Version 3)
Quarter: 2014Q4

REPORT INFORMATION
  Report Type: Spontaneous
  Country: TH (occurrence: None)
  Receive Date: 20140221
  Receipt Date: 20141003
  Transmission Date: 20150529
  Serious: Yes (Other)
  Sender: FDA-Public Use
  Company Number: TH-JNJFOC-20140206315

PATIENT
  Age: 62 Year
  Sex: Female

DRUGS (5)
  1. EUTHYROX (LEVOTHYROXINE SODIUM) [Concomitant]
  2. DACOGEN [Suspect]
     Active Substance: DECITABINE
     Indication: MYELODYSPLASTIC SYNDROME
     Route: 042
     Dates: start: 20131217, end: 20131221
  3. ACYCLOVIR (ACICLOVIR) (ACICLOVIR) [Concomitant]
     Active Substance: ACYCLOVIR
  4. SIMVASTATIN (SIMVASTATIN) [Concomitant]
     Active Substance: SIMVASTATIN
  5. CARVEDILOL (CARVEDILOL) [Concomitant]
     Active Substance: CARVEDILOL

REACTIONS (4)
  - Disease progression [None]
  - Drug ineffective [None]
  - Blast cell count increased [None]
  - Myelodysplastic syndrome [None]
